FAERS Safety Report 5314752-X (Version None)
Quarter: 2007Q2

REPORT INFORMATION
  Report Type: 
  Country: None (occurrence: None)
  Receive Date: 20070426
  Receipt Date: 20070416
  Transmission Date: 20071010
  Serious: No
  Sender: FDA-Public Use
  Company Number: TPA2007A00802

PATIENT
  Sex: Male

DRUGS (1)
  1. ACTOS [Suspect]

REACTIONS (1)
  - EXPIRED DRUG ADMINISTERED [None]
